FAERS Safety Report 8505562-0 (Version None)
Quarter: 2012Q3

REPORT INFORMATION
  Report Type: 
  Country: None (occurrence: None)
  Receive Date: 20120712
  Receipt Date: 20120703
  Transmission Date: 20120928
  Serious: Yes (Hospitalization)
  Sender: FDA-Public Use
  Company Number: US-ELI_LILLY_AND_COMPANY-US201203005502

PATIENT
  Sex: Female

DRUGS (18)
  1. PRAVASTATIN [Concomitant]
  2. FORTEO [Suspect]
     Dosage: 20 UG, QOD
     Dates: start: 20120317, end: 20120517
  3. NEXIUM [Concomitant]
  4. VITAMINS NOS [Concomitant]
  5. ALEVE [Concomitant]
     Indication: ARTHRALGIA
     Dosage: UNK, OTHER
  6. LABETALOL HCL [Concomitant]
  7. COZAAR [Concomitant]
  8. NORVASC [Concomitant]
  9. ASPIRIN [Concomitant]
     Dosage: 81 MG, UNK
  10. SYNTHROID [Concomitant]
  11. MECLIZINE HYDROCHLORIDE [Concomitant]
     Dosage: UNK, PRN
  12. NASONEX [Concomitant]
     Dosage: UNK, PRN
  13. VITAMIN D [Concomitant]
  14. TYLENOL (CAPLET) [Concomitant]
     Indication: ARTHRALGIA
     Dosage: UNK, OTHER
  15. BETAMETHASONE VALERATE [Concomitant]
     Indication: LIMB DISCOMFORT
     Route: 061
  16. FORTEO [Suspect]
     Indication: OSTEOPOROSIS
     Dosage: 20 UG, QD
     Dates: start: 20120206, end: 20120301
  17. CALCIUM +VIT D [Concomitant]
  18. IRON [Concomitant]

REACTIONS (8)
  - INVESTIGATION [None]
  - BONE PAIN [None]
  - FATIGUE [None]
  - DRUG INTOLERANCE [None]
  - ABDOMINAL PAIN [None]
  - CHEST PAIN [None]
  - OFF LABEL USE [None]
  - BLOOD SODIUM DECREASED [None]
